FAERS Safety Report 7726746-5 (Version None)
Quarter: 2011Q3

REPORT INFORMATION
  Report Type: 
  Country: None (occurrence: None)
  Receive Date: 20110902
  Receipt Date: 20110819
  Transmission Date: 20111222
  Serious: Yes (Other)
  Sender: FDA-Public Use
  Company Number: US-GLAXOSMITHKLINE-A0747321A

PATIENT
  Age: 47 Year
  Sex: Female
  Weight: 71.8 kg

DRUGS (5)
  1. AVANDIA [Suspect]
     Indication: TYPE 2 DIABETES MELLITUS
     Dosage: 8MG PER DAY
     Route: 048
     Dates: start: 20000101, end: 20070101
  2. SYNTHROID [Concomitant]
  3. AVANDAMET [Suspect]
     Route: 048
     Dates: end: 20050101
  4. LOTREL [Concomitant]
  5. CRESTOR [Concomitant]

REACTIONS (3)
  - CEREBRAL ISCHAEMIA [None]
  - ISCHAEMIA [None]
  - MYOCARDIAL INFARCTION [None]
